FAERS Safety Report 7054702-1 (Version None)
Quarter: 2010Q4

REPORT INFORMATION
  Report Type: 
  Country: None (occurrence: None)
  Receive Date: 20101015
  Receipt Date: 19980101
  Transmission Date: 20110411
  Serious: Yes (Death, Hospitalization)
  Sender: FDA-Public Use
  Company Number: CIO98000002

PATIENT
  Age: 45 Year
  Sex: Male

DRUGS (2)
  1. PEPTO-BISMOL ORIGINAL FORMULA, FLAVOR UNKNOWN(BISMUTH SUBSALICYLATE 26 [Suspect]
     Indication: CYTOMEGALOVIRUS COLITIS
     Dosage: 30-90 ML EVERY 2 HOURS AS NEEDED, ORAL
     Route: 048
  2. PEPTO-BISMOL ORIGINAL FORMULA, FLAVOR UNKNOWN(BISMUTH SUBSALICYLATE 26 [Suspect]
     Indication: DIARRHOEA
     Dosage: 30-90 ML EVERY 2 HOURS AS NEEDED, ORAL
     Route: 048

REACTIONS (12)
  - ANALGESIC DRUG LEVEL INCREASED [None]
  - COMA [None]
  - DEHYDRATION [None]
  - DIARRHOEA [None]
  - DRUG LEVEL INCREASED [None]
  - DRUG TOXICITY [None]
  - DYSARTHRIA [None]
  - LETHARGY [None]
  - MYOCLONUS [None]
  - STUPOR [None]
  - SYNCOPE [None]
  - TOXICOLOGIC TEST ABNORMAL [None]
